FAERS Safety Report 25063318 (Version 3)
Quarter: 2025Q4

REPORT INFORMATION
  Report Type: Spontaneous
  Country: JP (occurrence: JP)
  Receive Date: 20250311
  Receipt Date: 20251002
  Transmission Date: 20260117
  Serious: Yes (Death, Other)
  Sender: NOVARTIS
  Company Number: JP-002147023-NVSJ2025JP002950

PATIENT
  Age: 62 Year
  Sex: Male
  Weight: 65 kg

DRUGS (8)
  1. TAFINLAR [Suspect]
     Active Substance: DABRAFENIB MESYLATE
     Indication: Pancreatic carcinoma
     Dosage: 100 MG, BID
     Route: 048
     Dates: start: 20240828, end: 20240904
  2. TAFINLAR [Suspect]
     Active Substance: DABRAFENIB MESYLATE
     Indication: BRAF V600E mutation positive
     Dosage: 150 MG, BID
     Route: 048
     Dates: start: 20240905
  3. MEKINIST [Suspect]
     Active Substance: TRAMETINIB DIMETHYL SULFOXIDE
     Indication: Pancreatic carcinoma
     Dosage: 1.5 MG, QD
     Route: 048
     Dates: start: 20240828, end: 20240904
  4. MEKINIST [Suspect]
     Active Substance: TRAMETINIB DIMETHYL SULFOXIDE
     Indication: BRAF V600E mutation positive
     Dosage: 2 MG, QD
     Route: 048
     Dates: start: 20240905
  5. ELIQUIS [Concomitant]
     Active Substance: APIXABAN
     Indication: Jugular vein thrombosis
     Dosage: 10 MG
     Route: 048
     Dates: start: 20240501
  6. ASPIRIN [Concomitant]
     Active Substance: ASPIRIN
     Indication: Cerebral infarction
     Dosage: 100 MG
     Route: 048
     Dates: start: 20240621
  7. VONOPRAZAN FUMARATE [Concomitant]
     Active Substance: VONOPRAZAN FUMARATE
     Indication: Product used for unknown indication
     Dosage: 10 MG
     Route: 048
     Dates: start: 20240104
  8. ANAMORELIN HYDROCHLORIDE [Concomitant]
     Active Substance: ANAMORELIN HYDROCHLORIDE
     Indication: Product used for unknown indication
     Dosage: 100 MG
     Route: 048
     Dates: start: 20240828, end: 20240904

REACTIONS (4)
  - Pulmonary embolism [Fatal]
  - Metastases to liver [Fatal]
  - Abdominal pain upper [Fatal]
  - Malignant neoplasm progression [Fatal]

NARRATIVE: CASE EVENT DATE: 20241121
